FAERS Safety Report 10329058 (Version 3)
Quarter: 2014Q4

REPORT INFORMATION
  Report Type: Report from Study
  Country: AR (occurrence: AR)
  Receive Date: 20140721
  Receipt Date: 20141230
  Transmission Date: 20150528
  Serious: Yes (Hospitalization, Other)
  Sender: FDA-Public Use
  Company Number: PHHY2014AR088207

PATIENT
  Age: 64 Year
  Sex: Male

DRUGS (5)
  1. NICOTINELL [Suspect]
     Active Substance: NICOTINE
     Indication: PRODUCT USED FOR UNKNOWN INDICATION
     Dosage: UNK
     Route: 062
  2. SEEBRI BREEZHALER [Suspect]
     Active Substance: GLYCOPYRROLATE
     Dosage: 50 OT, QD
     Route: 055
     Dates: start: 20140617
  3. ONBREZ [Suspect]
     Active Substance: INDACATEROL
     Indication: CHRONIC OBSTRUCTIVE PULMONARY DISEASE
     Dosage: 300 UG, QD
     Route: 055
     Dates: start: 201402, end: 20140607
  4. SEEBRI BREEZHALER [Suspect]
     Active Substance: GLYCOPYRROLATE
     Indication: CHRONIC OBSTRUCTIVE PULMONARY DISEASE
     Dosage: 50 OT, QD
     Route: 055
     Dates: start: 201402, end: 20140607
  5. ONBREZ [Suspect]
     Active Substance: INDACATEROL
     Dosage: 300 UG, QD
     Route: 055
     Dates: start: 20140617

REACTIONS (3)
  - Oral fungal infection [Recovering/Resolving]
  - Drug withdrawal syndrome [Unknown]
  - Lung neoplasm [Unknown]

NARRATIVE: CASE EVENT DATE: 201403
